FAERS Safety Report 13517039 (Version 1)
Quarter: 2017Q2

REPORT INFORMATION
  Report Type: Spontaneous
  Country: US (occurrence: US)
  Receive Date: 20170505
  Receipt Date: 20170505
  Transmission Date: 20170830
  Serious: Yes (Hospitalization)
  Sender: FDA-Public Use
  Company Number: None

PATIENT
  Age: 84 Year
  Sex: Female
  Weight: 59.4 kg

DRUGS (8)
  1. MVI [Concomitant]
     Active Substance: VITAMINS
  2. FLONASE [Concomitant]
     Active Substance: FLUTICASONE PROPIONATE
  3. FOSAMAX [Concomitant]
     Active Substance: ALENDRONATE SODIUM
  4. REMERON [Concomitant]
     Active Substance: MIRTAZAPINE
  5. TPA [Suspect]
     Active Substance: ALTEPLASE
  6. TRICOR [Concomitant]
     Active Substance: FENOFIBRATE
  7. FOLVITE [Concomitant]
     Active Substance: FOLIC ACID
  8. FISH OIL [Concomitant]
     Active Substance: FISH OIL

REACTIONS (3)
  - Confusional state [None]
  - Intraventricular haemorrhage [None]
  - Subarachnoid haemorrhage [None]

NARRATIVE: CASE EVENT DATE: 20160922
